FAERS Safety Report 8933040 (Version 1)
Quarter: 2012Q4

REPORT INFORMATION
  Report Type: 
  Country: US (occurrence: US)
  Receive Date: 20121128
  Receipt Date: 20121128
  Transmission Date: 20130627
  Serious: Yes (Other)
  Sender: FDA-Public Use
  Company Number: US-BAYER-2012-122587

PATIENT
  Age: 15 Year
  Sex: Female
  Weight: 43 kg

DRUGS (2)
  1. MIDOL [Suspect]
     Indication: MENSTRUAL CRAMP
     Dosage: bottle count 24s
     Route: 048
     Dates: start: 20121120, end: 20121120
  2. ALBUTEROL INHALER [Concomitant]

REACTIONS (4)
  - Dyspnoea [Recovered/Resolved]
  - Rash macular [Recovered/Resolved]
  - Pallor [Recovered/Resolved]
  - Hypersensitivity [Recovered/Resolved]
